FAERS Safety Report 6557506-9 (Version None)
Quarter: 2010Q1

REPORT INFORMATION
  Report Type: 
  Country: None (occurrence: None)
  Receive Date: 20100129
  Receipt Date: 20100120
  Transmission Date: 20100710
  Serious: Yes (Other)
  Sender: FDA-Public Use
  Company Number: EG-ROCHE-680317

PATIENT
  Sex: Female

DRUGS (1)
  1. TAMIFLU [Suspect]
     Indication: H1N1 INFLUENZA
     Dosage: FREQUENCY REPORTED AS TWICE DAILY
     Route: 048
     Dates: start: 20091217, end: 20091223

REACTIONS (1)
  - HYPOTHERMIA [None]
